FAERS Safety Report 26139620 (Version 1)
Quarter: 2025Q4

REPORT INFORMATION
  Report Type: Spontaneous
  Country: US (occurrence: None)
  Receive Date: 20251209
  Receipt Date: 20251209
  Transmission Date: 20260117
  Serious: Yes (Hospitalization)
  Sender: FDA-CTU
  Company Number: None

PATIENT
  Sex: Female

DRUGS (4)
  1. TADALAFIL [Suspect]
     Active Substance: TADALAFIL
     Indication: Pulmonary arterial hypertension
     Dosage: FREQUENCY : DAILY;
     Route: 048
  2. WINREVAIR [Suspect]
     Active Substance: SOTATERCEPT-CSRK
  3. REMODULIN [Suspect]
     Active Substance: TREPROSTINIL
  4. LIDOCAINE/PRILOCAINE CRM [Concomitant]

REACTIONS (2)
  - Arterial stenosis [None]
  - Dyspnoea [None]
